FAERS Safety Report 6038102-9 (Version None)
Quarter: 2009Q1

REPORT INFORMATION
  Report Type: 
  Country: None (occurrence: None)
  Receive Date: 20090115
  Receipt Date: 20090107
  Transmission Date: 20090719
  Serious: Yes (Other)
  Sender: FDA-Public Use
  Company Number: FR-NOVOPROD-280701

PATIENT
  Age: 44 Year
  Sex: Female
  Weight: 65 kg

DRUGS (3)
  1. LEVEMIR [Suspect]
     Indication: TYPE 1 DIABETES MELLITUS
     Dosage: 28 IU, UNK
     Route: 058
     Dates: start: 20070512, end: 20080923
  2. NOVORAPID [Concomitant]
     Dosage: 20 IU, UNK
     Route: 058
     Dates: start: 20070512
  3. LEVOTHYROX [Concomitant]
     Dosage: 175 UG, UNK
     Route: 048
     Dates: start: 19920101

REACTIONS (3)
  - INJECTION SITE INDURATION [None]
  - INJECTION SITE NODULE [None]
  - INJECTION SITE PAIN [None]
